FAERS Safety Report 6110145-6 (Version None)
Quarter: 2009Q1

REPORT INFORMATION
  Report Type: 
  Country: None (occurrence: None)
  Receive Date: 20090310
  Receipt Date: 20090225
  Transmission Date: 20090719
  Serious: Yes (Hospitalization)
  Sender: FDA-Public Use
  Company Number: JP-ROCHE-613296

PATIENT
  Sex: Female

DRUGS (5)
  1. TAMIFLU [Suspect]
     Indication: INFLUENZA
     Route: 048
     Dates: start: 20090114, end: 20090115
  2. KLARICID [Concomitant]
     Route: 048
  3. HUSCODE [Concomitant]
     Dosage: NAME RPTD AS ANTITUSSIVE COMBINED DRUG
     Route: 048
  4. SEKINARIN [Concomitant]
     Route: 048
  5. ANTOBRON [Concomitant]
     Route: 048

REACTIONS (1)
  - MANIA [None]
